FAERS Safety Report 4497408-5 (Version None)
Quarter: 2004Q4

REPORT INFORMATION
  Report Type: 
  Country: None (occurrence: None)
  Receive Date: 20041104
  Receipt Date: 20041022
  Transmission Date: 20050328
  Serious: Yes (Hospitalization, Other)
  Sender: FDA-Public Use
  Company Number: 2004082915

PATIENT
  Sex: Female

DRUGS (4)
  1. NEURONTIN [Suspect]
     Indication: CONVULSION
     Dosage: 900 MG (300 MG, 3 IN 1 D), ORAL
     Route: 048
     Dates: start: 19800101
  2. LIPITOR [Suspect]
     Indication: BLOOD CHOLESTEROL INCREASED
     Dosage: ORAL
     Route: 048
     Dates: start: 19970101
  3. CALCIUM CARBONATE 9CALCIUM CARBONATE) [Concomitant]
  4. CENTRUM SILVER (ASCORBIC ACID, CALCIUM, MINERALS NOS, RETINOL, TOCOPHE [Concomitant]

REACTIONS (7)
  - BACK DISORDER [None]
  - BODY HEIGHT DECREASED [None]
  - BURSITIS [None]
  - CYST [None]
  - ROAD TRAFFIC ACCIDENT [None]
  - SCOLIOSIS [None]
  - WHEELCHAIR USER [None]
